FAERS Safety Report 18622893 (Version 1)
Quarter: 2020Q4

REPORT INFORMATION
  Report Type: Spontaneous
  Country: US (occurrence: US)
  Receive Date: 20201216
  Receipt Date: 20201216
  Transmission Date: 20210114
  Serious: No
  Sender: FDA-Public Use
  Company Number: US-TORRENT-00010561

PATIENT
  Sex: Female

DRUGS (1)
  1. ROSUVASTATIN CALCIUM TABLETS [Suspect]
     Active Substance: ROSUVASTATIN CALCIUM
     Indication: PRODUCT USED FOR UNKNOWN INDICATION
     Dosage: DISPENSED ON 25-NOV-2020
     Dates: start: 202011

REACTIONS (3)
  - Product taste abnormal [Recovered/Resolved]
  - Oropharyngeal discomfort [Unknown]
  - Product odour abnormal [Recovered/Resolved]

NARRATIVE: CASE EVENT DATE: 2020
